FAERS Safety Report 4336820-1 (Version None)
Quarter: 2004Q2

REPORT INFORMATION
  Report Type: 
  Country: None (occurrence: None)
  Receive Date: 20040407
  Receipt Date: 20040323
  Transmission Date: 20050107
  Serious: Yes (Life-Threatening)
  Sender: FDA-Public Use
  Company Number: A03200400899

PATIENT
  Age: 45 Year
  Sex: Female
  Weight: 57 kg

DRUGS (5)
  1. PRIMACOR [Suspect]
     Indication: CARDIAC FAILURE CONGESTIVE
     Dosage: 12.8 MCG/KG/MIN CONT - INTRAVENOUS DRIP
     Route: 042
     Dates: start: 20040108
  2. PHENYLEPHRINE HYDROCHLORIDE [Concomitant]
  3. GLYCERYL TRINITRATE [Concomitant]
  4. NOREPINEPHRINE BITARTRATE [Concomitant]
  5. HEPARIN [Concomitant]

REACTIONS (4)
  - ACCIDENTAL OVERDOSE [None]
  - BRADYCARDIA [None]
  - HYPOTENSION [None]
  - POST PROCEDURAL COMPLICATION [None]
